FAERS Safety Report 6077322-4 (Version None)
Quarter: 2009Q1

REPORT INFORMATION
  Report Type: 
  Country: None (occurrence: None)
  Receive Date: 20090213
  Receipt Date: 20090206
  Transmission Date: 20090719
  Serious: Yes (Other)
  Sender: FDA-Public Use
  Company Number: B0554673A

PATIENT
  Age: 83 Year
  Sex: Female

DRUGS (2)
  1. PAXIL [Suspect]
     Indication: ANXIETY
     Dosage: 20MG PER DAY
     Route: 048
     Dates: start: 20090113, end: 20090114
  2. ARICEPT [Suspect]
     Indication: DEMENTIA
     Dosage: 3MG PER DAY
     Route: 048
     Dates: start: 20090112, end: 20090114

REACTIONS (3)
  - AGITATION [None]
  - DELUSION [None]
  - SOLILOQUY [None]
